FAERS Safety Report 25529187 (Version 1)
Quarter: 2025Q3

REPORT INFORMATION
  Report Type: Spontaneous
  Country: US (occurrence: None)
  Receive Date: 20250707
  Receipt Date: 20250707
  Transmission Date: 20251021
  Serious: Yes (Hospitalization)
  Sender: FDA-CTU
  Company Number: None

PATIENT
  Age: 57 Year
  Sex: Male

DRUGS (10)
  1. DESCOVY [Suspect]
     Active Substance: EMTRICITABINE\TENOFOVIR ALAFENAMIDE FUMARATE
     Indication: HIV infection
     Dosage: FREQUENCY : DAILY;?
     Route: 048
  2. TIVICAY [Suspect]
     Active Substance: DOLUTEGRAVIR SODIUM
     Indication: HIV infection
     Dosage: FREQUENCY : DAILY;?
     Route: 048
  3. ELIQUIS [Suspect]
     Active Substance: APIXABAN
  4. METOPROLOL [Suspect]
     Active Substance: METOPROLOL
  5. SPIRONOLACTONE [Suspect]
     Active Substance: SPIRONOLACTONE
  6. ATORVASTATIN [Suspect]
     Active Substance: ATORVASTATIN
  7. ENTRESTO [Suspect]
     Active Substance: SACUBITRIL\VALSARTAN
  8. EZETIMIBE [Suspect]
     Active Substance: EZETIMIBE
  9. NITROGLYCERIN [Suspect]
     Active Substance: NITROGLYCERIN
  10. ALBUTEROL [Suspect]
     Active Substance: ALBUTEROL

REACTIONS (2)
  - Cardiac disorder [None]
  - Treatment noncompliance [None]

NARRATIVE: CASE EVENT DATE: 20250630
